FAERS Safety Report 13600661 (Version 1)
Quarter: 2017Q2

REPORT INFORMATION
  Report Type: Spontaneous
  Country: US (occurrence: US)
  Receive Date: 20170531
  Receipt Date: 20170531
  Transmission Date: 20170830
  Serious: No
  Sender: FDA-Public Use
  Company Number: None

PATIENT
  Age: 55 Year
  Sex: Female
  Weight: 65.38 kg

DRUGS (1)
  1. ROSUVASTATIN 10MG [Suspect]
     Active Substance: ROSUVASTATIN
     Indication: HYPERCHOLESTEROLAEMIA
     Route: 048
     Dates: start: 201501

REACTIONS (4)
  - Wrong technique in product usage process [None]
  - Feeling jittery [None]
  - Palpitations [None]
  - Withdrawal syndrome [None]

NARRATIVE: CASE EVENT DATE: 20170526
